FAERS Safety Report 5306389-3 (Version None)
Quarter: 2007Q2

REPORT INFORMATION
  Report Type: 
  Country: None (occurrence: None)
  Receive Date: 20070419
  Receipt Date: 20070406
  Transmission Date: 20071010
  Serious: Yes (Life-Threatening, Hospitalization)
  Sender: FDA-Public Use
  Company Number: SPV1-2007-01107

PATIENT
  Age: 38 Year
  Sex: Male

DRUGS (2)
  1. PENTASE(MESALAZINE, MESALAMINE) CAPSULE [Suspect]
     Indication: COLITIS ULCERATIVE
     Dosage: 2000 MG DAILY, ORAL
     Route: 048
     Dates: start: 20070206, end: 20070206
  2. SULFASALAZINE [Suspect]
     Indication: COLITIS ULCERATIVE
     Dosage: 4500 MG DAILY
     Dates: start: 20070127, end: 20070205

REACTIONS (8)
  - ARTHRALGIA [None]
  - CHILLS [None]
  - DRUG ERUPTION [None]
  - INTERSTITIAL LUNG DISEASE [None]
  - MALAISE [None]
  - MYALGIA [None]
  - NAUSEA [None]
  - STOMATITIS [None]
